FAERS Safety Report 17172460 (Version 1)
Quarter: 2019Q4

REPORT INFORMATION
  Report Type: Spontaneous
  Country: FR (occurrence: FR)
  Receive Date: 20191219
  Receipt Date: 20191219
  Transmission Date: 20200122
  Serious: Yes (Hospitalization)
  Sender: FDA-Public Use
  Company Number: FR-MYLANLABS-2019M1124353

PATIENT
  Age: 44 Year
  Sex: Male
  Weight: 78.5 kg

DRUGS (3)
  1. ALLOPURINOL. [Suspect]
     Active Substance: ALLOPURINOL
     Indication: GOUT
     Dosage: 300 MILLIGRAM, QD
     Route: 048
     Dates: start: 20190624, end: 20190713
  2. PARACETAMOL [Suspect]
     Active Substance: ACETAMINOPHEN
     Indication: GAIT DISTURBANCE
     Dosage: 4 DOSAGE FORM, QD
     Route: 048
     Dates: start: 201906, end: 20190722
  3. COLCHICINE. [Suspect]
     Active Substance: COLCHICINE
     Indication: GOUT
     Dosage: 1 MILLIGRAM, QD
     Route: 048
     Dates: start: 20190624, end: 20190627

REACTIONS (3)
  - Liver injury [Recovering/Resolving]
  - Vomiting [Recovered/Resolved]
  - Drug reaction with eosinophilia and systemic symptoms [Recovering/Resolving]

NARRATIVE: CASE EVENT DATE: 20190630
